FAERS Safety Report 20733484 (Version 1)
Quarter: 2022Q2

REPORT INFORMATION
  Report Type: Spontaneous
  Country: RO (occurrence: RO)
  Receive Date: 20220421
  Receipt Date: 20220421
  Transmission Date: 20220720
  Serious: Yes (Other)
  Sender: FDA-Public Use
  Company Number: RO-SUN PHARMACEUTICAL INDUSTRIES LTD-2022RR-333504

PATIENT
  Age: 45 Year
  Sex: Female

DRUGS (16)
  1. CAPECITABINE [Suspect]
     Active Substance: CAPECITABINE
     Indication: Metastases to peritoneum
     Dosage: 1250 MILLIGRAM/SQ. METER Q21D
     Route: 065
  2. CAPECITABINE [Suspect]
     Active Substance: CAPECITABINE
     Indication: Gastric cancer
     Dosage: 2000 MILLIGRAM/SQ. METER
     Route: 065
  3. IRINOTECAN [Suspect]
     Active Substance: IRINOTECAN
     Indication: Gastric cancer
     Dosage: 180 MILLIGRAM/SQ. METER Q14D
     Route: 065
  4. IRINOTECAN [Suspect]
     Active Substance: IRINOTECAN
     Indication: Metastases to peritoneum
  5. OXALIPLATIN [Suspect]
     Active Substance: OXALIPLATIN
     Indication: Gastric cancer
     Dosage: 130 MILLIGRAM/SQ. METER
     Route: 065
  6. OXALIPLATIN [Suspect]
     Active Substance: OXALIPLATIN
     Indication: Metastases to peritoneum
  7. PACLITAXEL [Suspect]
     Active Substance: PACLITAXEL
     Indication: Gastric cancer
     Dosage: 80 MILLIGRAM/SQ. METER Q7D
     Route: 065
  8. PACLITAXEL [Suspect]
     Active Substance: PACLITAXEL
     Indication: Metastases to peritoneum
  9. DOCETAXEL [Suspect]
     Active Substance: DOCETAXEL
     Indication: Metastases to peritoneum
     Dosage: 60 MILLIGRAM/SQ. METER Q21D
     Route: 065
  10. DOCETAXEL [Suspect]
     Active Substance: DOCETAXEL
     Indication: Gastric cancer
  11. EPIRUBICIN [Suspect]
     Active Substance: EPIRUBICIN
     Indication: Metastases to peritoneum
     Dosage: 50 MILLIGRAM/SQ. METER
     Route: 065
  12. EPIRUBICIN [Suspect]
     Active Substance: EPIRUBICIN
     Indication: Gastric cancer
  13. RAMUCIRUMAB [Suspect]
     Active Substance: RAMUCIRUMAB
     Indication: Metastases to peritoneum
     Dosage: 8 MILLIGRAM/KILOGRAM Q14D
     Route: 065
  14. RAMUCIRUMAB [Suspect]
     Active Substance: RAMUCIRUMAB
     Indication: Gastric cancer
  15. METHOTREXATE [Suspect]
     Active Substance: METHOTREXATE
     Indication: Gastric cancer
     Dosage: 12 MILLIGRAM Q2D
     Route: 037
  16. METHOTREXATE [Suspect]
     Active Substance: METHOTREXATE
     Indication: Metastases to peritoneum

REACTIONS (6)
  - Disease progression [Unknown]
  - Anaphylactic reaction [Unknown]
  - Headache [Unknown]
  - Diplopia [Unknown]
  - Disease recurrence [Unknown]
  - Thrombocytopenia [Unknown]
